FAERS Safety Report 16224842 (Version 1)
Quarter: 2019Q2

REPORT INFORMATION
  Report Type: Report from Study
  Country: IT (occurrence: IT)
  Receive Date: 20190422
  Receipt Date: 20190422
  Transmission Date: 20190711
  Serious: Yes (Life-Threatening, Other)
  Sender: FDA-Public Use
  Company Number: IT-MYLANLABS-2019M1036971

PATIENT
  Age: 82 Year
  Sex: Female

DRUGS (5)
  1. METOPROLOL TARTRATE. [Concomitant]
     Active Substance: METOPROLOL TARTRATE
     Dosage: 200 MILLIGRAM, QD
     Route: 048
  2. RAMIPRIL. [Suspect]
     Active Substance: RAMIPRIL
     Indication: HYPERTENSIVE HEART DISEASE
     Dosage: 2.5 MILLIGRAM, QD
     Route: 048
     Dates: start: 20140101
  3. PRADAXA [Interacting]
     Active Substance: DABIGATRAN ETEXILATE MESYLATE
     Indication: ATRIAL FIBRILLATION
     Dosage: 2 DOSAGE FORM, QD
     Route: 048
     Dates: start: 20170101, end: 20180924
  4. LACIREX [Concomitant]
     Active Substance: LACIDIPINE
     Dosage: UNK
     Route: 065
  5. TRANSTEC [Concomitant]
     Active Substance: BUPRENORPHINE
     Indication: PAIN
     Dosage: UNK, CONCENTRATION- 35 MICROGRAM/H
     Route: 062
     Dates: start: 20180901, end: 20180924

REACTIONS (9)
  - Intestinal ischaemia [Recovering/Resolving]
  - Renal failure [Recovering/Resolving]
  - Haemoglobin decreased [Recovering/Resolving]
  - Drug interaction [Unknown]
  - International normalised ratio increased [Recovering/Resolving]
  - Hyponatraemia [Recovering/Resolving]
  - Melaena [Recovering/Resolving]
  - Platelet count increased [Recovering/Resolving]
  - Hyperkalaemia [Recovering/Resolving]

NARRATIVE: CASE EVENT DATE: 20180923
